FAERS Safety Report 24953321 (Version 1)
Quarter: 2025Q1

REPORT INFORMATION
  Report Type: Spontaneous
  Country: US (occurrence: US)
  Receive Date: 20250211
  Receipt Date: 20250211
  Transmission Date: 20250409
  Serious: No
  Sender: SANOFI AVENTIS
  Company Number: US-SA-2025SA040452

PATIENT
  Sex: Female

DRUGS (3)
  1. KEVZARA [Suspect]
     Active Substance: SARILUMAB
     Indication: Rheumatoid arthritis
     Dosage: 200 MG, QOW
     Route: 058
     Dates: start: 202311
  2. RINVOQ [Concomitant]
     Active Substance: UPADACITINIB
  3. LYNPARZA [Concomitant]
     Active Substance: OLAPARIB
     Indication: Breast cancer female

REACTIONS (2)
  - Pain [Unknown]
  - Loss of personal independence in daily activities [Unknown]
